FAERS Safety Report 13820953 (Version 1)
Quarter: 2017Q3

REPORT INFORMATION
  Report Type: Spontaneous
  Country: US (occurrence: US)
  Receive Date: 20170801
  Receipt Date: 20170801
  Transmission Date: 20171127
  Serious: No
  Sender: FDA-Public Use
  Company Number: US-GLENMARK PHARMACEUTICALS-2017GMK027717

PATIENT

DRUGS (1)
  1. MUPIROCIN. [Suspect]
     Active Substance: MUPIROCIN
     Indication: SKIN ULCER
     Dosage: UNK UNK, PRN
     Route: 061
     Dates: start: 2005

REACTIONS (3)
  - Expired product administered [Unknown]
  - Product substitution issue [Unknown]
  - Application site swelling [Recovered/Resolved]
